FAERS Safety Report 5141757-4 (Version None)
Quarter: 2006Q4

REPORT INFORMATION
  Report Type: 
  Country: None (occurrence: None)
  Receive Date: 20061027
  Receipt Date: 20061010
  Transmission Date: 20070319
  Serious: Yes (Hospitalization)
  Sender: FDA-Public Use
  Company Number: ES200610001695

PATIENT
  Age: 70 Year
  Sex: Female

DRUGS (3)
  1. FORTEO [Suspect]
     Indication: OSTEOPOROSIS
     Dosage: 20 UG, SUBCUTANEOUS
     Route: 058
  2. FORTEO [Concomitant]
  3. SINTROM /NET/ (ACENOCOUMAROL) [Concomitant]

REACTIONS (3)
  - FAECES DISCOLOURED [None]
  - GASTRIC ULCER [None]
  - MELAENA [None]
